FAERS Safety Report 21274189 (Version 2)
Quarter: 2022Q3

REPORT INFORMATION
  Report Type: Report from Study
  Country: CO (occurrence: CO)
  Receive Date: 20220831
  Receipt Date: 20220901
  Transmission Date: 20221026
  Serious: Yes (Hospitalization, Other)
  Sender: FDA-Public Use
  Company Number: CO-009507513-2207COL006557

PATIENT
  Age: 78 Year
  Sex: Male
  Weight: 45 kg

DRUGS (5)
  1. PEMBROLIZUMAB [Suspect]
     Active Substance: PEMBROLIZUMAB
     Indication: Oesophageal carcinoma
     Dosage: 200 MG, IV, EVERY 3 WEEKS
     Route: 042
     Dates: start: 20220523, end: 20220523
  2. PEMBROLIZUMAB [Suspect]
     Active Substance: PEMBROLIZUMAB
     Dosage: 200 MG, IV, EVERY 3 WEEKS
     Route: 042
     Dates: start: 20220625, end: 20220625
  3. PEMBROLIZUMAB [Suspect]
     Active Substance: PEMBROLIZUMAB
     Dosage: 200 MG, IV, EVERY 3 WEEKS (CYCLE 3)
     Route: 042
     Dates: start: 20220717, end: 20220717
  4. LOSARTAN [Concomitant]
     Active Substance: LOSARTAN
     Indication: Hypertension
     Dosage: 50 MG, DAILY, ORAL
     Route: 048
     Dates: start: 20161010
  5. HYDROMORPHONE HYDROCHLORIDE [Concomitant]
     Active Substance: HYDROMORPHONE HYDROCHLORIDE
     Indication: Pain
     Dosage: 2.5 MG, ORAL, EVERY 8 HOURS
     Route: 048
     Dates: start: 20220208

REACTIONS (8)
  - Ill-defined disorder [Recovering/Resolving]
  - Malnutrition [Not Recovered/Not Resolved]
  - Weight decreased [Not Recovered/Not Resolved]
  - Abdominal discomfort [Not Recovered/Not Resolved]
  - Abdominal pain upper [Not Recovered/Not Resolved]
  - Decreased appetite [Not Recovered/Not Resolved]
  - Product use issue [Unknown]
  - Product use issue [Unknown]

NARRATIVE: CASE EVENT DATE: 20220625
